FAERS Safety Report 7969680-8 (Version None)
Quarter: 2011Q4

REPORT INFORMATION
  Report Type: 
  Country: None (occurrence: None)
  Receive Date: 20111122
  Receipt Date: 20110825
  Transmission Date: 20120403
  Serious: No
  Sender: FDA-Public Use
  Company Number: PHEH2011US02456

PATIENT
  Age: 44 Year
  Sex: Female

DRUGS (6)
  1. NEURONTIN [Concomitant]
  2. CALCIUM CARBONATE [Concomitant]
  3. GILENYA [Suspect]
     Dosage: 0.5 MG, QD, ORAL
     Route: 047
     Dates: start: 20110721
  4. FAMPRIDINE (FAMPRIDINE) [Concomitant]
  5. NAMENDA [Concomitant]
  6. ARICEPT [Concomitant]

REACTIONS (2)
  - NAUSEA [None]
  - BACK PAIN [None]
